FAERS Safety Report 8549351-X (Version None)
Quarter: 2012Q3

REPORT INFORMATION
  Report Type: 
  Country: None (occurrence: None)
  Receive Date: 20120730
  Receipt Date: 20120720
  Transmission Date: 20120928
  Serious: Yes (Disabling, Other)
  Sender: FDA-Public Use
  Company Number: US-ABBOTT-12P-163-0958866-00

PATIENT
  Sex: Male

DRUGS (6)
  1. MAVIK [Suspect]
     Indication: PRODUCT USED FOR UNKNOWN INDICATION
  2. PRAVACHOL [Suspect]
     Indication: PRODUCT USED FOR UNKNOWN INDICATION
  3. LIPITOR [Suspect]
     Indication: PRODUCT USED FOR UNKNOWN INDICATION
  4. CRESTOR [Suspect]
     Indication: PRODUCT USED FOR UNKNOWN INDICATION
  5. TICLID [Suspect]
     Indication: PRODUCT USED FOR UNKNOWN INDICATION
  6. TIKOSYN [Concomitant]
     Indication: PRODUCT USED FOR UNKNOWN INDICATION

REACTIONS (3)
  - MYALGIA [None]
  - RASH [None]
  - NEOPLASM MALIGNANT [None]
